FAERS Safety Report 19511158 (Version 1)
Quarter: 2021Q3

REPORT INFORMATION
  Report Type: Spontaneous
  Country: US (occurrence: US)
  Receive Date: 20210709
  Receipt Date: 20210709
  Transmission Date: 20211014
  Serious: Yes (Life-Threatening, Hospitalization, Other)
  Sender: FDA-Public Use
  Company Number: US-AUROBINDO-AUR-APL-2021-028044

PATIENT
  Age: 29 Year
  Sex: Male

DRUGS (1)
  1. RISPERIDONE. [Suspect]
     Active Substance: RISPERIDONE
     Indication: AUTISM SPECTRUM DISORDER
     Dosage: UNK
     Route: 065

REACTIONS (11)
  - Diabetes with hyperosmolarity [Recovering/Resolving]
  - Ketosis-prone diabetes mellitus [Recovering/Resolving]
  - Duodenitis [Unknown]
  - Hepatic steatosis [Unknown]
  - Pancreatitis acute [Unknown]
  - Nausea [Unknown]
  - Weight increased [Unknown]
  - Kussmaul respiration [Unknown]
  - Abdominal pain [Unknown]
  - Diabetic ketoacidosis [Recovered/Resolved]
  - Acanthosis nigricans [Unknown]
